FAERS Safety Report 4849669-8 (Version None)
Quarter: 2005Q4

REPORT INFORMATION
  Report Type: 
  Country: None (occurrence: None)
  Receive Date: 20051115
  Receipt Date: 20051006
  Transmission Date: 20060501
  Serious: No
  Sender: FDA-Public Use
  Company Number: S05-USA-04581-01

PATIENT
  Age: 83 Year
  Sex: Female

DRUGS (13)
  1. NAMENDA [Suspect]
     Indication: DEMENTIA
     Dosage: 5 MG QD PO
     Route: 048
     Dates: start: 20041215, end: 20041221
  2. NAMENDA [Suspect]
     Indication: DEMENTIA
     Dosage: 5 MG BID PO
     Route: 048
     Dates: start: 20041222, end: 20041228
  3. NAMENDA [Suspect]
     Indication: DEMENTIA
     Dosage: 15 MG QD PO
     Route: 048
     Dates: start: 20041229, end: 20050104
  4. NAMENDA [Suspect]
     Indication: DEMENTIA
     Dosage: 10 MG BID PO
     Route: 048
     Dates: start: 20050105
  5. ARICEPT [Concomitant]
  6. LEXAPRO [Concomitant]
  7. DIOVAN [Concomitant]
  8. OMEPRAZOLE [Concomitant]
  9. ACTONEL [Concomitant]
  10. DOCUSATE [Concomitant]
  11. ACETAMINOPHEN [Concomitant]
  12. ASPIRIN [Concomitant]
  13. MULTI-VITAMIN [Concomitant]

REACTIONS (1)
  - AGITATION [None]
